FAERS Safety Report 4846737-1 (Version None)
Quarter: 2005Q4

REPORT INFORMATION
  Report Type: 
  Country: None (occurrence: None)
  Receive Date: 20051206
  Receipt Date: 20050907
  Transmission Date: 20060501
  Serious: Yes (Hospitalization)
  Sender: FDA-Public Use
  Company Number: US-MERCK-0509USA00825

PATIENT
  Age: 42 Year
  Sex: Male
  Weight: 116 kg

DRUGS (3)
  1. VIOXX [Suspect]
     Indication: BACK PAIN
     Route: 048
     Dates: start: 20040501, end: 20040801
  2. HYDROCODONE BITARTRATE [Concomitant]
     Route: 065
  3. CELEBREX [Concomitant]
     Route: 048

REACTIONS (7)
  - BRADYCARDIA [None]
  - CORONARY ARTERY OCCLUSION [None]
  - CORONARY ARTERY STENOSIS [None]
  - DYSLIPIDAEMIA [None]
  - HYPERTENSION [None]
  - MYOCARDIAL INFARCTION [None]
  - SINUS BRADYCARDIA [None]
